FAERS Safety Report 17912750 (Version 8)
Quarter: 2023Q1

REPORT INFORMATION
  Report Type: Spontaneous
  Country: US (occurrence: US)
  Receive Date: 20200618
  Receipt Date: 20230323
  Transmission Date: 20230418
  Serious: Yes (Other)
  Sender: FDA-Public Use
  Company Number: US-PFIZER INC-2020236858

PATIENT
  Age: 56 Year
  Sex: Female
  Weight: 81 kg

DRUGS (4)
  1. IBRANCE [Suspect]
     Active Substance: PALBOCICLIB
     Indication: Breast cancer metastatic
     Dosage: 125 MG (DAILY)
     Route: 048
     Dates: start: 20160618
  2. IBRANCE [Suspect]
     Active Substance: PALBOCICLIB
     Dosage: 125 MG, CYCLIC (ONCE A DAY FOR 21 DAYS)
     Dates: start: 20200526
  3. FULVESTRANT [Concomitant]
     Active Substance: FULVESTRANT
     Indication: Breast cancer
     Dosage: UNK
     Dates: start: 20160816
  4. XGEVA [Concomitant]
     Active Substance: DENOSUMAB
     Indication: Metastases to bone
     Dosage: UNK
     Dates: start: 20160919

REACTIONS (8)
  - Neuropathy peripheral [Recovered/Resolved]
  - Wrong technique in product usage process [Unknown]
  - Hormone level abnormal [Unknown]
  - Nail disorder [Recovered/Resolved]
  - Stress [Recovered/Resolved]
  - White blood cell count decreased [Unknown]
  - Intentional product misuse [Unknown]
  - Restless legs syndrome [Unknown]
